FAERS Safety Report 8438652-1 (Version None)
Quarter: 2012Q2

REPORT INFORMATION
  Report Type: 
  Country: None (occurrence: None)
  Receive Date: 20120615
  Receipt Date: 20120602
  Transmission Date: 20120825
  Serious: Yes (Other)
  Sender: FDA-Public Use
  Company Number: JP-PAR PHARMACEUTICAL, INC-2012SCPR004435

PATIENT

DRUGS (3)
  1. RISPERIDONE [Suspect]
     Indication: HALLUCINATION, AUDITORY
  2. RISPERIDONE [Suspect]
     Indication: HALLUCINATION, VISUAL
     Dosage: 2 MG, / DAY
     Route: 065
  3. PAROXETINE [Suspect]
     Indication: DEPRESSION
     Dosage: 20 MG, / DAY
     Route: 065

REACTIONS (1)
  - DEPRESSIVE SYMPTOM [None]
